FAERS Safety Report 17136137 (Version 1)
Quarter: 2019Q4

REPORT INFORMATION
  Report Type: Spontaneous
  Country: US (occurrence: US)
  Receive Date: 20191210
  Receipt Date: 20191210
  Transmission Date: 20200122
  Serious: No
  Sender: FDA-Public Use
  Company Number: US-BAUSCH-BL-2019-062429

PATIENT
  Age: 63 Year
  Sex: Female

DRUGS (2)
  1. VITRASE [Suspect]
     Active Substance: HYALURONIDASE, OVINE
     Dosage: STRENGTH:200 USP UNITS/ML, AT A DOSE OF 03 UNIT
     Route: 065
     Dates: start: 20191105, end: 20191105
  2. VITRASE [Suspect]
     Active Substance: HYALURONIDASE, OVINE
     Indication: ADJUVANT THERAPY
     Dosage: STRENGTH:200 USP UNITS/ML, AT A DOSE OF 35 UNIT
     Route: 065
     Dates: start: 201910, end: 201910

REACTIONS (2)
  - Hypovolaemia [Unknown]
  - Skin discolouration [Not Recovered/Not Resolved]

NARRATIVE: CASE EVENT DATE: 2019
